FAERS Safety Report 9717622 (Version 3)
Quarter: 2014Q1

REPORT INFORMATION
  Report Type: Spontaneous
  Country: SE (occurrence: SE)
  Receive Date: 20131127
  Receipt Date: 20140117
  Transmission Date: 20141002
  Serious: Yes (Other)
  Sender: FDA-Public Use
  Company Number: SE-PFIZER INC-2013337265

PATIENT
  Age: 42 Year
  Sex: Male
  Weight: 92 kg

DRUGS (1)
  1. CHAMPIX [Suspect]
     Indication: SMOKING CESSATION THERAPY
     Dosage: 0.5 MG, 1X/DAY (IN THE EVENING)
     Route: 048
     Dates: start: 20131119, end: 20131119

REACTIONS (3)
  - Tunnel vision [Recovered/Resolved]
  - Vision blurred [Recovered/Resolved]
  - Migraine with aura [Recovered/Resolved]
